FAERS Safety Report 7636035-5 (Version None)
Quarter: 2011Q3

REPORT INFORMATION
  Report Type: 
  Country: None (occurrence: None)
  Receive Date: 20110726
  Receipt Date: 20110719
  Transmission Date: 20111222
  Serious: Yes (Hospitalization)
  Sender: FDA-Public Use
  Company Number: JP-ROCHE-773348

PATIENT
  Sex: Male
  Weight: 66 kg

DRUGS (9)
  1. XELODA [Suspect]
     Route: 048
     Dates: start: 20100817, end: 20101206
  2. OXALIPLATIN [Suspect]
     Route: 041
     Dates: start: 20101206, end: 20110412
  3. OXALIPLATIN [Suspect]
     Route: 041
     Dates: end: 20110511
  4. DECADRON [Concomitant]
  5. OXALIPLATIN [Suspect]
     Indication: RECTAL CANCER
     Route: 041
     Dates: start: 20100628, end: 20100817
  6. OXALIPLATIN [Suspect]
     Route: 041
     Dates: start: 20100817, end: 20101206
  7. XELODA [Suspect]
     Indication: RECTAL CANCER
     Dosage: DRUG: XELODA 300
     Route: 048
     Dates: start: 20100628, end: 20100817
  8. AVASTIN [Suspect]
     Indication: RECTAL CANCER
     Route: 041
     Dates: start: 20100628, end: 20110412
  9. XELODA [Suspect]
     Route: 048
     Dates: start: 20101206, end: 20110511

REACTIONS (4)
  - URTICARIA [None]
  - HYPERSENSITIVITY [None]
  - NEUTROPHIL COUNT DECREASED [None]
  - BLOOD PRESSURE DECREASED [None]
